FAERS Safety Report 7521218-5 (Version None)
Quarter: 2011Q2

REPORT INFORMATION
  Report Type: 
  Country: None (occurrence: None)
  Receive Date: 20110603
  Receipt Date: 20101209
  Transmission Date: 20111010
  Serious: Yes (Other)
  Sender: FDA-Public Use
  Company Number: DE-BAYER-201033432GPV

PATIENT
  Age: 25 Year
  Sex: Male
  Weight: 90 kg

DRUGS (1)
  1. BETAFERON [Suspect]
     Indication: MULTIPLE SCLEROSIS
     Dosage: UNK
     Route: 058
     Dates: start: 20080301

REACTIONS (3)
  - ANGINA PECTORIS [None]
  - HYPERHIDROSIS [None]
  - PALPITATIONS [None]
